FAERS Safety Report 20359349 (Version 1)
Quarter: 2022Q1

REPORT INFORMATION
  Report Type: Spontaneous
  Country: US (occurrence: US)
  Receive Date: 20220121
  Receipt Date: 20220121
  Transmission Date: 20220423
  Serious: Yes (Other)
  Sender: FDA-Public Use
  Company Number: US-TOLMAR, INC.-22US032520

PATIENT
  Age: 61 Year
  Sex: Female

DRUGS (1)
  1. ELIGARD [Suspect]
     Active Substance: LEUPROLIDE ACETATE
     Indication: Endometrial stromal sarcoma
     Dosage: UNK

REACTIONS (2)
  - Endometrial sarcoma metastatic [Unknown]
  - Off label use [Unknown]
